FAERS Safety Report 16111273 (Version 2)
Quarter: 2019Q2

REPORT INFORMATION
  Report Type: Report from Study
  Country: IE (occurrence: IE)
  Receive Date: 20190325
  Receipt Date: 20190410
  Transmission Date: 20190711
  Serious: Yes (Other)
  Sender: FDA-Public Use
  Company Number: IE-IPSEN BIOPHARMACEUTICALS, INC.-2017-09653

PATIENT
  Age: 42 Year
  Sex: Female

DRUGS (39)
  1. MONTELUKAST [Concomitant]
     Active Substance: MONTELUKAST SODIUM
     Dosage: ONE DOSE AT NIGHT
     Route: 050
  2. RANITIDINE. [Concomitant]
     Active Substance: RANITIDINE
     Dosage: 1 AT NIGHT
     Route: 050
  3. CYMBALTA [Concomitant]
     Active Substance: DULOXETINE HYDROCHLORIDE
  4. ZOFRAN [Concomitant]
     Active Substance: ONDANSETRON HYDROCHLORIDE
     Route: 050
  5. LYRICA [Concomitant]
     Active Substance: PREGABALIN
  6. CLARITHROMYCIN. [Concomitant]
     Active Substance: CLARITHROMYCIN
     Dosage: 500 MG , Q 12H
  7. SPIOLTO RESPIMAT [Concomitant]
     Active Substance: OLODATEROL HYDROCHLORIDE\TIOTROPIUM BROMIDE MONOHYDRATE
  8. FYBOGEL [Concomitant]
     Active Substance: PLANTAGO OVATA SEED
     Route: 050
  9. STEMETIL [Concomitant]
     Active Substance: PROCHLORPERAZINE MALEATE
  10. MAXOLON [Concomitant]
     Active Substance: METOCLOPRAMIDE HYDROCHLORIDE
     Route: 050
  11. COMBIVENT [Concomitant]
     Active Substance: ALBUTEROL SULFATE\IPRATROPIUM BROMIDE
  12. LIDOCAINE. [Concomitant]
     Active Substance: LIDOCAINE
     Route: 065
  13. SOMATULINE AUTOGEL 120MG [Suspect]
     Active Substance: LANREOTIDE ACETATE
     Indication: NEUROENDOCRINE TUMOUR
     Dosage: 120 MG
     Route: 058
     Dates: start: 20170728
  14. COMBIVENT [Concomitant]
     Active Substance: ALBUTEROL SULFATE\IPRATROPIUM BROMIDE
     Indication: PRODUCT USED FOR UNKNOWN INDICATION
  15. IMODIUM [Concomitant]
     Active Substance: LOPERAMIDE HYDROCHLORIDE
     Route: 065
  16. VALOID [Concomitant]
     Active Substance: CYCLIZINE HYDROCHLORIDE
     Route: 050
  17. ELTROXIN [Concomitant]
     Active Substance: LEVOTHYROXINE
     Dosage: ELTROXIN FRI-SUN.
     Route: 050
  18. THIAMINE. [Concomitant]
     Active Substance: THIAMINE
  19. MELATONIN [Concomitant]
     Active Substance: MELATONIN
  20. SERETIDE [Concomitant]
     Active Substance: FLUTICASONE PROPIONATE\SALMETEROL XINAFOATE
     Route: 050
  21. HYDROCORTISONE. [Concomitant]
     Active Substance: HYDROCORTISONE
     Route: 050
  22. SALINE [Concomitant]
     Active Substance: SODIUM CHLORIDE
     Route: 050
  23. PHYLLOCONTIN [Concomitant]
     Active Substance: AMINOPHYLLINE
     Route: 050
  24. ELTROXIN [Concomitant]
     Active Substance: LEVOTHYROXINE
     Dosage: ELTROXIN MON-THURS
     Route: 050
  25. COLOFAC [Concomitant]
     Active Substance: MEBEVERINE HYDROCHLORIDE
  26. SOLPADEINE [Concomitant]
  27. CIPRAMIL [CITALOPRAM HYDROBROMIDE] [Concomitant]
     Active Substance: CITALOPRAM HYDROBROMIDE
     Route: 050
  28. VITAMIN D2 [Concomitant]
     Active Substance: ERGOCALCIFEROL
     Route: 050
  29. RANITIDINE. [Concomitant]
     Active Substance: RANITIDINE
     Dosage: NIGHT
  30. BUSCOPAN [Concomitant]
     Active Substance: BUTYLSCOPOLAMINE BROMIDE
     Route: 050
  31. NEXIUM [Concomitant]
     Active Substance: ESOMEPRAZOLE MAGNESIUM
  32. SEEBRI BREEZHALER [Concomitant]
     Active Substance: GLYCOPYRROLATE
     Route: 050
  33. PHENERGAN [Concomitant]
     Active Substance: PROMETHAZINE HYDROCHLORIDE
     Route: 050
  34. SCHERIPROCT [Concomitant]
     Active Substance: DIBUCAINE HYDROCHLORIDE\PREDNISOLONE
  35. MOTILIUM [Suspect]
     Active Substance: DOMPERIDONE
     Indication: PRODUCT USED FOR UNKNOWN INDICATION
     Dates: start: 20170922
  36. CODEINE [Concomitant]
     Active Substance: CODEINE
  37. PARACETAMOL [Concomitant]
     Active Substance: ACETAMINOPHEN
     Route: 050
  38. DRYNOL [Concomitant]
     Dosage: 1 DOSE AT NIGHT
     Route: 050
  39. MYCOSTATIN [Concomitant]
     Active Substance: NYSTATIN

REACTIONS (17)
  - Diarrhoea [Not Recovered/Not Resolved]
  - Arthralgia [Not Recovered/Not Resolved]
  - Gastritis [Not Recovered/Not Resolved]
  - Paraesthesia oral [Unknown]
  - Haematochezia [Not Recovered/Not Resolved]
  - Respiratory disorder [Unknown]
  - Headache [Not Recovered/Not Resolved]
  - Abdominal pain [Not Recovered/Not Resolved]
  - Hyperhidrosis [Unknown]
  - Nausea [Not Recovered/Not Resolved]
  - Irritable bowel syndrome [Recovering/Resolving]
  - Cough [Not Recovered/Not Resolved]
  - Wheezing [Recovering/Resolving]
  - Insomnia [Not Recovered/Not Resolved]
  - Fatigue [Unknown]
  - Hypoaesthesia [Not Recovered/Not Resolved]
  - Migraine [Not Recovered/Not Resolved]

NARRATIVE: CASE EVENT DATE: 2017
